FAERS Safety Report 20594171 (Version 1)
Quarter: 2022Q1

REPORT INFORMATION
  Report Type: Spontaneous
  Country: FR (occurrence: FR)
  Receive Date: 20220315
  Receipt Date: 20220315
  Transmission Date: 20220423
  Serious: Yes (Congenital Anomaly, Other)
  Sender: FDA-Public Use
  Company Number: FR-ABBVIE-22K-056-4315287-00

PATIENT
  Sex: Male

DRUGS (2)
  1. VALPROATE SODIUM [Suspect]
     Active Substance: VALPROATE SODIUM
     Indication: Maternal exposure timing unspecified
     Route: 064
  2. DIAZEPAM [Suspect]
     Active Substance: DIAZEPAM
     Indication: Maternal exposure timing unspecified
     Route: 064

REACTIONS (26)
  - Foetal anticonvulsant syndrome [Unknown]
  - Disturbance in attention [Unknown]
  - Dyslexia [Unknown]
  - Dysgraphia [Unknown]
  - Reading disorder [Unknown]
  - Disturbance in social behaviour [Unknown]
  - Learning disorder [Unknown]
  - Limb malformation [Unknown]
  - Hypotonia [Unknown]
  - Dysmorphism [Unknown]
  - Educational problem [Unknown]
  - Spine malformation [Unknown]
  - Speech disorder developmental [Unknown]
  - Hypermobility syndrome [Unknown]
  - Affective disorder [Unknown]
  - Partial seizures [Unknown]
  - Macrocephaly [Unknown]
  - Scoliosis [Unknown]
  - Memory impairment [Unknown]
  - Foot deformity [Unknown]
  - Oropharyngeal discomfort [Unknown]
  - Ear disorder [Unknown]
  - Nasal disorder [Unknown]
  - Overweight [Unknown]
  - Sluggishness [Unknown]
  - Foetal exposure during pregnancy [Unknown]
